FAERS Safety Report 6814712-3 (Version None)
Quarter: 2010Q2

REPORT INFORMATION
  Report Type: 
  Country: None (occurrence: None)
  Receive Date: 20100628
  Receipt Date: 20100621
  Transmission Date: 20101027
  Serious: Yes (Other)
  Sender: FDA-Public Use
  Company Number: A0866245A

PATIENT
  Age: 42 Year
  Sex: Male

DRUGS (1)
  1. SODIUM FLUORIDE + ISOPENTANE + SODIUM TRIPOLYPHOSPHATE TOOTH (NAFLUORI [Suspect]
     Indication: DENTAL CLEANING
     Dosage: DENTAL
     Route: 004
     Dates: end: 20100621

REACTIONS (7)
  - CHOKING SENSATION [None]
  - COUGH [None]
  - DYSPNOEA [None]
  - LACRIMATION INCREASED [None]
  - RETCHING [None]
  - RHINORRHOEA [None]
  - SPEECH DISORDER [None]
